FAERS Safety Report 21724108 (Version 1)
Quarter: 2022Q4

REPORT INFORMATION
  Report Type: Spontaneous
  Country: US (occurrence: US)
  Receive Date: 20221213
  Receipt Date: 20221213
  Transmission Date: 20230113
  Serious: Yes (Other)
  Sender: FDA-Public Use
  Company Number: US-TEVA-2022-US-2834309

PATIENT
  Age: 18 Year
  Sex: Male

DRUGS (1)
  1. CLARAVIS [Suspect]
     Active Substance: ISOTRETINOIN
     Indication: Product used for unknown indication
     Dosage: 40 MG
     Route: 065
     Dates: start: 20220401, end: 20220428

REACTIONS (5)
  - Hallucination, auditory [Not Recovered/Not Resolved]
  - Suicide attempt [Unknown]
  - Psychotic disorder [Not Recovered/Not Resolved]
  - Intentional overdose [Recovered/Resolved]
  - Imprisonment [Unknown]

NARRATIVE: CASE EVENT DATE: 20220101
